FAERS Safety Report 12705164 (Version 1)
Quarter: 2016Q3

REPORT INFORMATION
  Report Type: Spontaneous
  Country: US (occurrence: US)
  Receive Date: 20160831
  Receipt Date: 20160831
  Transmission Date: 20161109
  Serious: No
  Sender: FDA-Public Use
  Company Number: US-ASTRAZENECA-2016SE91290

PATIENT
  Age: 84 Year
  Sex: Female

DRUGS (12)
  1. OMEPRAZOLE. [Suspect]
     Active Substance: OMEPRAZOLE
     Indication: GASTROOESOPHAGEAL REFLUX DISEASE
     Dosage: 20.0MG UNKNOWN
     Route: 048
  2. IBRANCE [Concomitant]
     Active Substance: PALBOCICLIB
     Dates: start: 20160814
  3. AMLODIPINE [Concomitant]
     Active Substance: AMLODIPINE BESYLATE
     Dosage: 5 MG AT NOON
  4. HYDROCO [Concomitant]
     Indication: PAIN
     Dosage: 325.0MG AS REQUIRED
  5. CARAFATE [Concomitant]
     Active Substance: SUCRALFATE
     Indication: GASTROOESOPHAGEAL REFLUX DISEASE
     Dosage: 1G/10ML, OCCASIONALLY AS NEEDED, BEFORE MEALS
  6. METOPROLOL. [Suspect]
     Active Substance: METOPROLOL
     Route: 048
  7. IBRANCE [Concomitant]
     Active Substance: PALBOCICLIB
     Dates: start: 20160601, end: 20160615
  8. FASLODEX [Suspect]
     Active Substance: FULVESTRANT
     Route: 030
     Dates: start: 2014, end: 201605
  9. LETROZOLE. [Concomitant]
     Active Substance: LETROZOLE
     Dosage: 2.5MG UNKNOWN
  10. BABY ASPIRIN [Concomitant]
     Active Substance: ASPIRIN
     Dosage: AS NEEDED
  11. ISOSORBIDE. [Concomitant]
     Active Substance: ISOSORBIDE
  12. RANEXA [Concomitant]
     Active Substance: RANOLAZINE

REACTIONS (6)
  - Weight decreased [Not Recovered/Not Resolved]
  - Nausea [Recovered/Resolved]
  - Epistaxis [Recovered/Resolved]
  - Cough [Not Recovered/Not Resolved]
  - Retching [Not Recovered/Not Resolved]
  - Oesophagitis [Not Recovered/Not Resolved]

NARRATIVE: CASE EVENT DATE: 2015
